FAERS Safety Report 22016967 (Version 1)
Quarter: 2023Q1

REPORT INFORMATION
  Report Type: Spontaneous
  Country: NO (occurrence: NO)
  Receive Date: 20230221
  Receipt Date: 20230221
  Transmission Date: 20230418
  Serious: Yes (Life-Threatening, Hospitalization)
  Sender: FDA-Public Use
  Company Number: None

PATIENT
  Age: 51 Year
  Sex: Female

DRUGS (4)
  1. FINGOLIMOD [Suspect]
     Active Substance: FINGOLIMOD
     Indication: Multiple sclerosis
     Dosage: UNK (GENERIC TO GILENYA FROM SPRING/SUMMER 2022)
     Route: 065
     Dates: start: 2022, end: 20221020
  2. GILENYA [Suspect]
     Active Substance: FINGOLIMOD HYDROCHLORIDE
     Indication: Multiple sclerosis
     Dosage: 0.5 MILLIGRAM, QD
     Route: 065
     Dates: start: 20140822, end: 2022
  3. MIRABEGRON [Concomitant]
     Active Substance: MIRABEGRON
     Dosage: 50 MILLIGRAM, 50 MG X 1CONTINUED USE OF MEDICINAL
     Route: 065
     Dates: start: 20150603
  4. PANTOPRAZOLE [Concomitant]
     Active Substance: PANTOPRAZOLE
     Dosage: 20 MILLIGRAM (20 MG 1X1 CONTINUED USE OF MEDIC)
     Route: 065

REACTIONS (2)
  - Metastases to liver [Unknown]
  - Colon cancer [Unknown]

NARRATIVE: CASE EVENT DATE: 20221129
